FAERS Safety Report 13045608 (Version 2)
Quarter: 2017Q4

REPORT INFORMATION
  Report Type: Report from Study
  Country: KR (occurrence: KR)
  Receive Date: 20161220
  Receipt Date: 20171010
  Transmission Date: 20180320
  Serious: Yes (Hospitalization, Other)
  Sender: FDA-Public Use
  Company Number: KR-BAYER-2014-175612

PATIENT
  Age: 54 Year
  Sex: Female

DRUGS (1)
  1. BETAFERON [Suspect]
     Active Substance: INTERFERON BETA-1B
     Indication: MULTIPLE SCLEROSIS
     Dosage: 1 ML, QOD
     Route: 058
     Dates: start: 20110731

REACTIONS (16)
  - Pain [None]
  - Fatigue [Recovered/Resolved]
  - Nasopharyngitis [None]
  - Eye inflammation [Not Recovered/Not Resolved]
  - Pruritus [Recovered/Resolved]
  - Ligament rupture [Recovering/Resolving]
  - Fatigue [Not Recovered/Not Resolved]
  - Thyroid cancer [None]
  - Oesophagitis [None]
  - Dysphagia [None]
  - Eye discharge [Not Recovered/Not Resolved]
  - Pain [Recovering/Resolving]
  - Asthenia [Not Recovered/Not Resolved]
  - Back pain [Recovering/Resolving]
  - Chills [Recovered/Resolved]
  - Pain [Recovered/Resolved]

NARRATIVE: CASE EVENT DATE: 2015
